FAERS Safety Report 5875239-9 (Version None)
Quarter: 2008Q3

REPORT INFORMATION
  Report Type: 
  Country: None (occurrence: None)
  Receive Date: 20080909
  Receipt Date: 20080905
  Transmission Date: 20090109
  Serious: Yes (Other)
  Sender: FDA-Public Use
  Company Number: ES-ASTRAZENECA-2008AC02128

PATIENT
  Age: 68 Year
  Sex: Female

DRUGS (5)
  1. ESOMEPRAZOLE [Suspect]
     Indication: GASTRITIS
     Route: 065
     Dates: start: 20080118, end: 20080223
  2. ACENOCOUMAROL [Interacting]
     Indication: THROMBOSIS PROPHYLAXIS
     Route: 065
  3. SIMVASTATIN [Concomitant]
     Indication: HYPERCHOLESTEROLAEMIA
     Dosage: STARTED YEARS AGO
  4. ALPRAZOLAM [Concomitant]
     Indication: DEPRESSION
  5. DULOXETINE [Concomitant]
     Indication: DEPRESSION

REACTIONS (2)
  - DRUG INTERACTION [None]
  - PROTHROMBIN TIME PROLONGED [None]
